FAERS Safety Report 12981110 (Version 2)
Quarter: 2017Q4

REPORT INFORMATION
  Report Type: Spontaneous
  Country: US (occurrence: US)
  Receive Date: 20161128
  Receipt Date: 20171127
  Transmission Date: 20180320
  Serious: No
  Sender: FDA-Public Use
  Company Number: US-AUROBINDO-AUR-APL-2016-11343

PATIENT
  Sex: Female
  Weight: 65.76 kg

DRUGS (1)
  1. LOSARTAN POTASSIUM / HYDROCHLOROTHIAZIDE TABLETS [Suspect]
     Active Substance: HYDROCHLOROTHIAZIDE\LOSARTAN POTASSIUM
     Indication: HYPERTENSION
     Dosage: 1 DF, ONCE A DAY
     Route: 048
     Dates: start: 2014, end: 201608

REACTIONS (5)
  - Alopecia [Recovered/Resolved]
  - Headache [Recovered/Resolved]
  - Therapy change [Recovered/Resolved]
  - Pruritus [Recovered/Resolved]
  - Head discomfort [Recovered/Resolved]

NARRATIVE: CASE EVENT DATE: 2016
